FAERS Safety Report 14206258 (Version 1)
Quarter: 2017Q4

REPORT INFORMATION
  Report Type: Report from Study
  Country: BR (occurrence: BR)
  Receive Date: 20171120
  Receipt Date: 20171120
  Transmission Date: 20180321
  Serious: Yes (Life-Threatening)
  Sender: FDA-Public Use
  Company Number: PHHY2017BR143419

PATIENT
  Sex: Female
  Weight: 59 kg

DRUGS (4)
  1. EXELON PATCH [Suspect]
     Active Substance: RIVASTIGMINE
     Indication: MEMORY IMPAIRMENT
     Dosage: 9.5 MG, QD PATCH 10 (CM2)
     Route: 062
  2. EXELON PATCH [Suspect]
     Active Substance: RIVASTIGMINE
     Dosage: 9.5 MG, QD PATCH 10 (CM2)
     Route: 062
  3. EXELON PATCH [Suspect]
     Active Substance: RIVASTIGMINE
     Indication: AMNESIA
     Dosage: 4.6 MG, QD PATCH 5 (CM2)
     Route: 062
  4. EXELON PATCH [Suspect]
     Active Substance: RIVASTIGMINE
     Dosage: 13.3 MG, QD PATCH 15 (CM2)
     Route: 062

REACTIONS (9)
  - Weight decreased [Recovering/Resolving]
  - Decreased appetite [Recovering/Resolving]
  - Insomnia [Recovering/Resolving]
  - General physical health deterioration [Recovering/Resolving]
  - Feeling abnormal [Recovering/Resolving]
  - Poor quality sleep [Recovering/Resolving]
  - Nightmare [Recovering/Resolving]
  - Drug intolerance [Recovering/Resolving]
  - Malaise [Recovering/Resolving]
